FAERS Safety Report 19492793 (Version 2)
Quarter: 2021Q3

REPORT INFORMATION
  Report Type: Other
  Country: DE (occurrence: DE)
  Receive Date: 20210705
  Receipt Date: 20210713
  Transmission Date: 20211014
  Serious: Yes (Death, Life-Threatening, Hospitalization)
  Sender: FDA-Public Use
  Company Number: DE-ROCHE-2862047

PATIENT
  Age: 70 Year
  Sex: Female

DRUGS (2)
  1. BEVACIZUMAB. [Suspect]
     Active Substance: BEVACIZUMAB
     Indication: HEPATOCELLULAR CARCINOMA
     Dosage: UNKNOWN
     Route: 065
  2. ATEZOLIZUMAB. [Suspect]
     Active Substance: ATEZOLIZUMAB
     Indication: HEPATOCELLULAR CARCINOMA
     Dosage: UNKNOWN
     Route: 065

REACTIONS (10)
  - Hepatocellular carcinoma [Fatal]
  - Multiple organ dysfunction syndrome [Fatal]
  - Intensive care unit acquired weakness [Unknown]
  - Respiratory failure [Unknown]
  - Encephalitis [Recovered/Resolved]
  - Polyneuropathy [Unknown]
  - Off label use [Unknown]
  - Radiculopathy [Unknown]
  - Pneumonia aspiration [Recovered/Resolved]
  - Potentiating drug interaction [Unknown]
